FAERS Safety Report 23570030 (Version 1)
Quarter: 2024Q1

REPORT INFORMATION
  Report Type: Spontaneous
  Country: US (occurrence: None)
  Receive Date: 20240226
  Receipt Date: 20240226
  Transmission Date: 20240409
  Serious: Yes (Other)
  Sender: FDA-Public Use
  Company Number: None

PATIENT
  Age: 76 Year
  Sex: Male
  Weight: 59.42 kg

DRUGS (10)
  1. PANTOPRAZOLE [Suspect]
     Active Substance: PANTOPRAZOLE
  2. CARVEDILOL [Concomitant]
     Active Substance: CARVEDILOL
  3. ROSUVASTATIN [Concomitant]
     Active Substance: ROSUVASTATIN
  4. EZETIMIBE [Concomitant]
     Active Substance: EZETIMIBE
  5. LISINOPRIL [Concomitant]
     Active Substance: LISINOPRIL
  6. WARFARIN [Concomitant]
     Active Substance: WARFARIN
  7. SPIRONOLACTONE [Concomitant]
     Active Substance: SPIRONOLACTONE
  8. OMEGA 3 [Concomitant]
     Active Substance: CAPSAICIN
  9. Multivitamin [Concomitant]
  10. PROBIOTICS NOS [Concomitant]
     Active Substance: PROBIOTICS NOS

REACTIONS (3)
  - Diarrhoea [None]
  - Muscle spasms [None]
  - Therapy cessation [None]

NARRATIVE: CASE EVENT DATE: 20230430
